FAERS Safety Report 13312155 (Version 1)
Quarter: 2017Q1

REPORT INFORMATION
  Report Type: Report from Study
  Country: US (occurrence: US)
  Receive Date: 20170309
  Receipt Date: 20170309
  Transmission Date: 20170428
  Serious: Yes (Life-Threatening, Hospitalization, Other)
  Sender: FDA-Public Use
  Company Number: US-SAOL THERAPEUTICS-0700850628

PATIENT
  Sex: Male

DRUGS (3)
  1. BUPIVACAINE. [Suspect]
     Active Substance: BUPIVACAINE
     Dosage: 18.046 MG, \DAY
     Route: 037
  2. COMPOUNDED BACLOFEN [Suspect]
     Active Substance: BACLOFEN
     Indication: PAIN
     Dosage: 240.61 ?G, \DAY
     Route: 037
  3. DILAUDID [Suspect]
     Active Substance: HYDROMORPHONE HYDROCHLORIDE
     Indication: PAIN
     Dosage: 1.203 MG, \DAY
     Route: 037

REACTIONS (12)
  - Delirium [Unknown]
  - Mental status changes [Unknown]
  - Implant site infection [Unknown]
  - Back pain [Unknown]
  - Septic shock [Unknown]
  - Off label use [Unknown]
  - Medical device site pain [Unknown]
  - Pyrexia [Unknown]
  - Hypotension [Unknown]
  - Sepsis [Unknown]
  - Chills [Unknown]
  - Dyspnoea [Unknown]
